FAERS Safety Report 7381435-4 (Version None)
Quarter: 2011Q1

REPORT INFORMATION
  Report Type: 
  Country: None (occurrence: None)
  Receive Date: 20110329
  Receipt Date: 20110324
  Transmission Date: 20110831
  Serious: Yes (Life-Threatening, Hospitalization, Disabling)
  Sender: FDA-Public Use
  Company Number: FR-ROCHE-759613

PATIENT
  Sex: Female
  Weight: 38 kg

DRUGS (3)
  1. MIRCERA [Suspect]
     Route: 058
     Dates: start: 20100501, end: 20101201
  2. SPECIAFOLDINE [Concomitant]
     Route: 048
  3. ACTONEL [Concomitant]

REACTIONS (2)
  - ISCHAEMIC STROKE [None]
  - HAEMOGLOBIN INCREASED [None]
